FAERS Safety Report 5834007-4 (Version None)
Quarter: 2008Q3

REPORT INFORMATION
  Report Type: 
  Country: None (occurrence: None)
  Receive Date: 20080804
  Receipt Date: 20080804
  Transmission Date: 20090109
  Serious: No
  Sender: FDA-Public Use
  Company Number: None

PATIENT
  Age: 32 Year
  Sex: Female
  Weight: 74.8435 kg

DRUGS (1)
  1. TRANSDERM SCOP [Suspect]
     Indication: MOTION SICKNESS
     Dosage: 1.5 MG EVERY 3 DAYS
     Dates: start: 20080723, end: 20080729

REACTIONS (3)
  - APPLICATION SITE REACTION [None]
  - HYPERSENSITIVITY [None]
  - MASS [None]
